FAERS Safety Report 10147037 (Version 1)
Quarter: 2014Q2

REPORT INFORMATION
  Report Type: Spontaneous
  Country: US (occurrence: None)
  Receive Date: 20140430
  Receipt Date: 20140430
  Transmission Date: 20141212
  Serious: Yes (Hospitalization)
  Sender: FDA-Public Use
  Company Number: None

PATIENT
  Age: 59 Year
  Sex: Female

DRUGS (17)
  1. METHOTREXATE [Suspect]
     Indication: NEOPLASM MALIGNANT
     Route: 042
     Dates: start: 20130706, end: 20130706
  2. CALCIUM + VITAMIN D [Concomitant]
  3. ENOXAPARIN [Concomitant]
  4. DOCUSATE [Concomitant]
  5. GABAPENTIN [Concomitant]
  6. INSULIN ASPART [Concomitant]
  7. INSULIN GLARGINE [Concomitant]
  8. PYRIDOXINE [Concomitant]
  9. RANITIDINE [Concomitant]
  10. SIMVASTATIN [Concomitant]
  11. ACETAMINOPHEN [Concomitant]
  12. DIPHENHYDRAMINE [Concomitant]
  13. SODIUM BICARBONATE [Concomitant]
  14. TEMOZOLOMIDE [Concomitant]
  15. DEXAMETHASONE [Concomitant]
  16. ONDANSETRON [Concomitant]
  17. RITUXIMAB [Concomitant]

REACTIONS (1)
  - Blood creatinine increased [None]
